FAERS Safety Report 10921725 (Version 1)
Quarter: 2015Q1

REPORT INFORMATION
  Report Type: Spontaneous
  Country: ES (occurrence: None)
  Receive Date: 20150312
  Receipt Date: 20150312
  Transmission Date: 20150721
  Serious: Yes (Other)
  Sender: FDA-Public Use
  Company Number: 2276989

PATIENT
  Age: 49 Year
  Sex: Female

DRUGS (5)
  1. 5-FLUOROURACIL [Suspect]
     Active Substance: FLUOROURACIL
     Indication: COLORECTAL CANCER RECURRENT
     Dosage: CYCLICAL
     Dates: start: 200907
  2. RALTITREXED DISODIUM [Suspect]
     Active Substance: RALTITREXED
     Indication: COLORECTAL CANCER RECURRENT
     Dosage: CYCLICAL
     Dates: start: 201107
  3. IRINOTECAN HYDROCHLORIDE. [Suspect]
     Active Substance: IRINOTECAN HYDROCHLORIDE
     Indication: COLORECTAL CANCER RECURRENT
  4. FOLINIC ACID [Suspect]
     Active Substance: LEUCOVORIN
     Indication: COLORECTAL CANCER RECURRENT
     Dosage: CYCLICAL
     Dates: start: 200907
  5. OXALIPLATIN. [Suspect]
     Active Substance: OXALIPLATIN
     Indication: COLORECTAL CANCER RECURRENT
     Dosage: CYCLICAL
     Dates: start: 200907

REACTIONS (4)
  - Disease progression [None]
  - Therapeutic response decreased [None]
  - Unevaluable event [None]
  - Paradoxical embolism [None]
